FAERS Safety Report 10177138 (Version 3)
Quarter: 2014Q2

REPORT INFORMATION
  Report Type: Spontaneous
  Country: IT (occurrence: None)
  Receive Date: 20140514
  Receipt Date: 20140626
  Transmission Date: 20141212
  Serious: Yes (Death)
  Sender: FDA-Public Use
  Company Number: 2331689

PATIENT
  Age: 77 Year
  Sex: Male
  Weight: 62 kg

DRUGS (9)
  1. CARBOPLATIN [Suspect]
     Indication: LUNG CARCINOMA CELL TYPE UNSPECIFIED STAGE IV
     Dosage: CYCLICAL
     Route: 042
     Dates: start: 20140123, end: 20140411
  2. ALIMTA [Suspect]
     Indication: LUNG CARCINOMA CELL TYPE UNSPECIFIED STAGE IV
     Dosage: CYCLICAL
     Route: 042
     Dates: start: 20140123, end: 20140411
  3. DOBETIN [Concomitant]
  4. CARDIOASPIRIN [Concomitant]
  5. FOLIC ACID [Concomitant]
  6. METOPROLOL [Concomitant]
  7. ATORVASTATIN CALCIUM TRIHYDRATE [Concomitant]
  8. RAMIPRIL [Concomitant]
  9. AMLODIPINE MALEATE [Concomitant]

REACTIONS (6)
  - Febrile neutropenia [None]
  - Anaemia [None]
  - Thrombocytopenia [None]
  - Dyspnoea [None]
  - Confusional state [None]
  - Bronchiectasis [None]
